FAERS Safety Report 6341737-7 (Version None)
Quarter: 2009Q3

REPORT INFORMATION
  Report Type: 
  Country: None (occurrence: None)
  Receive Date: 20090904
  Receipt Date: 20090824
  Transmission Date: 20100115
  Serious: Yes (Hospitalization)
  Sender: FDA-Public Use
  Company Number: FR-PFIZER INC-2009258455

PATIENT
  Age: 77 Year

DRUGS (11)
  1. TAHOR [Suspect]
     Indication: HYPERCHOLESTEROLAEMIA
     Dosage: 80 MG, 1X/DAY
     Route: 048
     Dates: start: 20090201, end: 20090225
  2. FORLAX [Concomitant]
     Indication: CONSTIPATION
     Dosage: 1 DF, 2X/DAY
     Route: 048
  3. EPOETIN BETA [Concomitant]
     Indication: ANAEMIA
     Dosage: 4000 IU, WEEKLY
     Route: 058
  4. PREVISCAN [Concomitant]
     Indication: ARRHYTHMIA
     Dosage: 10 MG, 1X/DAY
     Route: 048
  5. EQUANIL [Concomitant]
     Indication: ANXIETY
     Dosage: 300 MG, 1X/DAY
     Route: 048
  6. ATENOLOL [Concomitant]
     Indication: HYPERTENSION
     Dosage: 50 MG, 1X/DAY
     Route: 048
  7. OMEPRAZOLE [Concomitant]
     Indication: GASTRITIS
     Dosage: 20 MG, 1X/DAY
     Route: 048
  8. XATRAL [Concomitant]
     Indication: PROSTATOMEGALY
     Dosage: 10 MG, 1X/DAY
     Route: 048
  9. NICARDIPINE HCL [Concomitant]
     Indication: HYPERTENSION
     Dosage: 50 MG, 1X/DAY
     Route: 048
  10. KARDEGIC [Concomitant]
     Indication: THROMBOSIS PROPHYLAXIS
     Dosage: 160 MG, 1X/DAY
     Route: 048
  11. TARDYFERON [Concomitant]
     Indication: IRON DEFICIENCY
     Dosage: 1 DF, 1X/DAY

REACTIONS (3)
  - CHOLESTASIS [None]
  - CYTOLYTIC HEPATITIS [None]
  - TRANSAMINASES INCREASED [None]
